FAERS Safety Report 5262075-X (Version None)
Quarter: 2007Q1

REPORT INFORMATION
  Report Type: 
  Country: None (occurrence: None)
  Receive Date: 20061208
  Receipt Date: 20061002
  Transmission Date: 20070707
  Serious: Yes (Death, Life-Threatening)
  Sender: FDA-Public Use
  Company Number: USA-2006-0025311

PATIENT
  Age: 28 Year
  Sex: Male

DRUGS (4)
  1. OXYCODONE HCL [Suspect]
     Indication: DRUG ABUSER
  2. ALCOHOL (ETHANOL) [Suspect]
     Indication: ALCOHOL USE
  3. METHADONE HCL [Suspect]
     Indication: DRUG ABUSER
  4. COCAINE (COCAINE) [Suspect]
     Indication: DRUG ABUSER

REACTIONS (3)
  - OVERDOSE [None]
  - RESPIRATORY ARREST [None]
  - SUBSTANCE ABUSE [None]
